FAERS Safety Report 6321141-8 (Version None)
Quarter: 2009Q3

REPORT INFORMATION
  Report Type: 
  Country: None (occurrence: None)
  Receive Date: 20090822
  Receipt Date: 20090306
  Transmission Date: 20100115
  Serious: No
  Sender: FDA-Public Use
  Company Number: US-ABBOTT-08P-163-0480921-00

PATIENT
  Sex: Female

DRUGS (8)
  1. NIASPAN [Suspect]
     Indication: HYPERCHOLESTEROLAEMIA
     Dosage: DAILY
     Route: 048
     Dates: start: 20080908
  2. NIASPAN [Suspect]
     Dosage: 2000 MG, DAILY
     Route: 048
  3. MOBIC [Concomitant]
     Indication: DRUG USE FOR UNKNOWN INDICATION
     Dosage: 15MG ON 1ST DAY OF NIASPAN THERAPY, 7.5MG ON DAYS 2-7 OF NIASPAN THERAPY.
     Route: 048
     Dates: start: 20080906, end: 20080906
  4. MOBIC [Concomitant]
     Dosage: ON DAYS 2-7 OF NIASPAN THERAPY
     Route: 048
     Dates: start: 20080907, end: 20080913
  5. ASPIRIN [Concomitant]
     Indication: DRUG USE FOR UNKNOWN INDICATION
     Route: 048
     Dates: start: 20080906, end: 20080913
  6. CLARITIN [Concomitant]
     Indication: DRUG USE FOR UNKNOWN INDICATION
     Route: 048
     Dates: start: 20080906, end: 20080913
  7. PRIMIDONE [Concomitant]
     Indication: DRUG USE FOR UNKNOWN INDICATION
     Route: 048
  8. ESTRACE [Concomitant]
     Indication: DRUG USE FOR UNKNOWN INDICATION
     Route: 048

REACTIONS (2)
  - FLATULENCE [None]
  - FLUSHING [None]
